FAERS Safety Report 19002799 (Version 1)
Quarter: 2021Q1

REPORT INFORMATION
  Report Type: Spontaneous
  Country: US (occurrence: US)
  Receive Date: 20210312
  Receipt Date: 20210312
  Transmission Date: 20210420
  Serious: Yes (Other)
  Sender: FDA-Public Use
  Company Number: US-PFIZER INC-2021235980

PATIENT
  Age: 41 Year
  Sex: Female

DRUGS (1)
  1. XELJANZ XR [Suspect]
     Active Substance: TOFACITINIB CITRATE
     Dosage: 11 MG
     Dates: start: 20200721

REACTIONS (6)
  - Blood calcium increased [Unknown]
  - Sinusitis [Unknown]
  - Urinary tract infection [Unknown]
  - Pharyngitis [Unknown]
  - Hepatic enzyme increased [Unknown]
  - Protein total increased [Unknown]
